FAERS Safety Report 19067528 (Version 1)
Quarter: 2021Q1

REPORT INFORMATION
  Report Type: Spontaneous
  Country: DE (occurrence: DE)
  Receive Date: 20210329
  Receipt Date: 20210329
  Transmission Date: 20210420
  Serious: Yes (Other)
  Sender: FDA-Public Use
  Company Number: DE-JNJFOC-20210336578

PATIENT
  Sex: Female

DRUGS (3)
  1. RIVAROXABAN [Suspect]
     Active Substance: RIVAROXABAN
     Indication: DEEP VEIN THROMBOSIS
     Dosage: 20 MG, QD
     Route: 065
     Dates: start: 202011, end: 20210302
  2. RIVAROXABAN [Suspect]
     Active Substance: RIVAROXABAN
     Dosage: 15 MG, BID
     Route: 048
     Dates: start: 202010
  3. RIVAROXABAN [Suspect]
     Active Substance: RIVAROXABAN
     Dosage: 10 MG, QD
     Route: 048
     Dates: start: 20210303

REACTIONS (9)
  - Dyspnoea [Unknown]
  - Cataract [Unknown]
  - Aversion [Unknown]
  - Feeling abnormal [Unknown]
  - Chest pain [Unknown]
  - Hypoaesthesia [Unknown]
  - Product prescribing issue [Unknown]
  - Off label use [Unknown]
  - Rash macular [Unknown]
